FAERS Safety Report 23841877 (Version 1)
Quarter: 2024Q2

REPORT INFORMATION
  Report Type: Spontaneous
  Country: US (occurrence: US)
  Receive Date: 20240510
  Receipt Date: 20240510
  Transmission Date: 20240715
  Serious: No
  Sender: FDA-Public Use
  Company Number: US-MYLANLABS-2024M1040294

PATIENT

DRUGS (1)
  1. LISDEXAMFETAMINE DIMESYLATE [Suspect]
     Active Substance: LISDEXAMFETAMINE DIMESYLATE
     Indication: Attention deficit hyperactivity disorder
     Dosage: UNK
     Route: 065
     Dates: start: 20240206

REACTIONS (9)
  - Product substitution issue [Unknown]
  - Therapeutic response changed [Unknown]
  - Vision blurred [Unknown]
  - Anxiety [Unknown]
  - Bruxism [Unknown]
  - Sluggishness [Unknown]
  - Hypersomnia [Unknown]
  - Headache [Unknown]
  - Insomnia [Unknown]
